FAERS Safety Report 9236215 (Version 1)
Quarter: 2013Q1

REPORT INFORMATION
  Report Type: Spontaneous
  Country: US (occurrence: None)
  Receive Date: 20121031
  Receipt Date: 20121031
  Transmission Date: 20140127
  Serious: No
  Sender: FDA-Public Use
  Company Number: PHEH2012US013733

PATIENT
  Age: 43 Year
  Sex: Female
  Weight: 74.6 kg

DRUGS (4)
  1. GILENYA (FTY) [Suspect]
     Indication: MULTIPLE SCLEROSIS
     Route: 048
     Dates: start: 20120710
  2. BACLOFEN (BACLOFEN) [Concomitant]
  3. TENUATE (AMFEPRAMONE HYDROCHLORIDE) [Concomitant]
  4. ZIAC (BISOPROLOL FUMURATE, HYDROCHLOROTHIAZIDE) [Concomitant]

REACTIONS (1)
  - Somnolence [None]
